FAERS Safety Report 5098484-1 (Version None)
Quarter: 2006Q3

REPORT INFORMATION
  Report Type: 
  Country: None (occurrence: None)
  Receive Date: 20060906
  Receipt Date: 20060129
  Transmission Date: 20061208
  Serious: No
  Sender: FDA-Public Use
  Company Number: US-GLAXOSMITHKLINE-A0591758A

PATIENT
  Sex: Male

DRUGS (1)
  1. REQUIP [Suspect]
     Indication: HEAD INJURY
     Route: 048

REACTIONS (3)
  - ADVERSE EVENT [None]
  - DYSTONIA [None]
  - OFF LABEL USE [None]
